FAERS Safety Report 6448195-2 (Version None)
Quarter: 2009Q4

REPORT INFORMATION
  Report Type: 
  Country: None (occurrence: None)
  Receive Date: 20091120
  Receipt Date: 20091110
  Transmission Date: 20100525
  Serious: Yes (Other)
  Sender: FDA-Public Use
  Company Number: US-PFIZER INC-2009295998

PATIENT
  Sex: Female

DRUGS (12)
  1. PREDNISONE [Suspect]
  2. NORVASC [Suspect]
     Indication: HYPERTENSION
  3. DRONEDARONE [Suspect]
     Indication: ATRIAL FIBRILLATION
     Dosage: 400 MG, 2X/DAY
     Route: 048
     Dates: start: 20091022
  4. WARFARIN [Suspect]
     Indication: ATRIAL FIBRILLATION
     Dosage: UNK
     Dates: end: 20091001
  5. LISINOPRIL AND HYDROCHLOROTHIAZIDE [Suspect]
     Dosage: UNK
  6. ACETYLSALICYLIC ACID [Concomitant]
     Dosage: 81 MG, 1X/DAY
     Route: 048
  7. CALCIUM [Concomitant]
     Route: 065
  8. GABAPENTIN [Concomitant]
     Route: 065
  9. CINNAMON [Concomitant]
     Indication: DIABETES MELLITUS
     Route: 065
  10. METFORMIN [Concomitant]
     Dosage: 500 MG, 2X/DAY
     Route: 048
     Dates: start: 20070101
  11. FISH OIL [Concomitant]
     Dosage: UNK, 1X/DAY
     Route: 065
  12. MULTI-VITAMINS [Concomitant]

REACTIONS (6)
  - CONFUSIONAL STATE [None]
  - DRUG INTERACTION [None]
  - FATIGUE [None]
  - INTERNATIONAL NORMALISED RATIO INCREASED [None]
  - MEMORY IMPAIRMENT [None]
  - THINKING ABNORMAL [None]
